FAERS Safety Report 8517785-5 (Version None)
Quarter: 2012Q3

REPORT INFORMATION
  Report Type: 
  Country: None (occurrence: None)
  Receive Date: 20120718
  Receipt Date: 20120709
  Transmission Date: 20120928
  Serious: Yes (Other)
  Sender: FDA-Public Use
  Company Number: US-ASTRAZENECA-2012SE38786

PATIENT
  Age: 54 Year
  Sex: Female

DRUGS (1)
  1. TOPROL-XL [Suspect]
     Route: 048

REACTIONS (7)
  - STRESS [None]
  - BLOOD CHOLESTEROL INCREASED [None]
  - HYPERTENSION [None]
  - OVERWEIGHT [None]
  - CEREBROVASCULAR ACCIDENT [None]
  - ARTERIOSCLEROSIS CORONARY ARTERY [None]
  - CARDIAC VALVE DISEASE [None]
